FAERS Safety Report 9475347 (Version 2)
Quarter: 2013Q3

REPORT INFORMATION
  Report Type: Spontaneous
  Country: US (occurrence: None)
  Receive Date: 20130821
  Receipt Date: 20130906
  Transmission Date: 20140515
  Serious: Yes (Life-Threatening, Hospitalization)
  Sender: FDA-Public Use
  Company Number: 20130436

PATIENT
  Age: 42 Year
  Sex: Female
  Weight: 57.5 kg

DRUGS (5)
  1. VENOFER [Suspect]
     Dosage: 100 MG  3 X WEEK IVP
     Dates: start: 20130724
  2. EPOGEN (EPOETIN ALFA (EPOGEN) [Concomitant]
  3. HEPARIN-PORK [Concomitant]
  4. ZEMPLAR MULTIDOSE (PARICALCITL (ZEMPLAR MULTIDOSE) [Concomitant]
  5. ZONE PERFECT PROTEIN BAR [Concomitant]

REACTIONS (3)
  - Grand mal convulsion [None]
  - Cardiac arrest [None]
  - Blood pressure increased [None]
